FAERS Safety Report 4648538-6 (Version None)
Quarter: 2005Q2

REPORT INFORMATION
  Report Type: 
  Country: None (occurrence: None)
  Receive Date: 20050427
  Receipt Date: 20050414
  Transmission Date: 20051028
  Serious: Yes (Other)
  Sender: FDA-Public Use
  Company Number: 2005056223

PATIENT
  Age: 89 Year
  Sex: Female

DRUGS (1)
  1. BEXTRA [Suspect]
     Indication: SHOULDER PAIN
     Dosage: 40 MG (40 MG, 1 IN 1 D), ORAL
     Route: 048
     Dates: start: 20050401, end: 20050401

REACTIONS (2)
  - SKIN EXFOLIATION [None]
  - SKIN IRRITATION [None]
